FAERS Safety Report 13578024 (Version 5)
Quarter: 2017Q4

REPORT INFORMATION
  Report Type: Report from Study
  Country: BR (occurrence: BR)
  Receive Date: 20170524
  Receipt Date: 20171227
  Transmission Date: 20180320
  Serious: Yes (Other)
  Sender: FDA-Public Use
  Company Number: PHHY2017BR073853

PATIENT
  Sex: Female
  Weight: 48 kg

DRUGS (7)
  1. COSENTYX [Suspect]
     Active Substance: SECUKINUMAB
     Dosage: 300 MG, QMO
     Route: 058
     Dates: start: 20161118
  2. COSENTYX [Suspect]
     Active Substance: SECUKINUMAB
     Dosage: 300 MG, QMO
     Route: 058
  3. COSENTYX [Suspect]
     Active Substance: SECUKINUMAB
     Dosage: 3000 MG, QMO
     Route: 058
     Dates: start: 20171031
  4. CALCIUM [Concomitant]
     Active Substance: CALCIUM
     Indication: OSTEOPOROSIS
     Route: 065
  5. COSENTYX [Suspect]
     Active Substance: SECUKINUMAB
     Dosage: 300 MG, QMO
     Route: 058
     Dates: start: 20170310
  6. VITAMIN D [Concomitant]
     Active Substance: CHOLECALCIFEROL
     Indication: OSTEOPOROSIS
     Route: 065
  7. COSENTYX [Suspect]
     Active Substance: SECUKINUMAB
     Indication: PSORIASIS
     Dosage: 300 MG, QW3
     Route: 058
     Dates: start: 20160916

REACTIONS (14)
  - Skin lesion [Recovering/Resolving]
  - Weight decreased [Unknown]
  - Malaise [Unknown]
  - Skin exfoliation [Unknown]
  - Diabetes mellitus [Recovering/Resolving]
  - Psoriasis [Recovering/Resolving]
  - Pain [Unknown]
  - Hypertension [Recovering/Resolving]
  - Osteoporosis [Recovering/Resolving]
  - Inappropriate schedule of drug administration [Unknown]
  - Pruritus [Unknown]
  - Retinitis [Recovering/Resolving]
  - Depressed mood [Unknown]
  - Drug ineffective [Unknown]
